FAERS Safety Report 23931575 (Version 1)
Quarter: 2024Q2

REPORT INFORMATION
  Report Type: Spontaneous
  Country: US (occurrence: US)
  Receive Date: 20240603
  Receipt Date: 20240603
  Transmission Date: 20240715
  Serious: No
  Sender: FDA-Public Use
  Company Number: US-STRIDES ARCOLAB LIMITED-2024SP000397

PATIENT
  Age: 52 Year
  Sex: Female

DRUGS (10)
  1. VANCOMYCIN [Suspect]
     Active Substance: VANCOMYCIN
     Indication: Keratitis fungal
     Dosage: UNK
     Route: 065
  2. TOBRAMYCIN [Concomitant]
     Active Substance: TOBRAMYCIN\TOBRAMYCIN SULFATE
     Indication: Corneal abrasion
     Dosage: UNK
     Route: 065
  3. TOBRAMYCIN [Concomitant]
     Active Substance: TOBRAMYCIN\TOBRAMYCIN SULFATE
     Indication: Keratitis fungal
     Dosage: UNK
     Route: 065
  4. DEXAMETHASONE [Concomitant]
     Active Substance: DEXAMETHASONE
     Indication: Corneal abrasion
     Dosage: UNK
     Route: 065
  5. CYCLOPENTOLATE [Concomitant]
     Active Substance: CYCLOPENTOLATE
     Indication: Keratitis fungal
     Dosage: UNK
     Route: 065
  6. NATAMYCIN [Concomitant]
     Active Substance: NATAMYCIN
     Indication: Keratitis fungal
     Dosage: UNK
     Route: 065
  7. VORICONAZOLE [Concomitant]
     Active Substance: VORICONAZOLE
     Indication: Keratitis fungal
     Dosage: UNK
     Route: 065
  8. AMPHOTERICIN B [Concomitant]
     Active Substance: AMPHOTERICIN B
     Indication: Keratitis fungal
     Dosage: UNK
     Route: 065
  9. POSACONAZOLE [Concomitant]
     Active Substance: POSACONAZOLE
     Indication: Keratitis fungal
     Dosage: UNK
     Route: 065
  10. PREDNISOLONE [Concomitant]
     Active Substance: PREDNISOLONE
     Indication: Keratitis fungal
     Dosage: UNK
     Route: 065

REACTIONS (1)
  - Off label use [Unknown]
